FAERS Safety Report 6549979-2 (Version None)
Quarter: 2010Q1

REPORT INFORMATION
  Report Type: 
  Country: None (occurrence: None)
  Receive Date: 20100125
  Receipt Date: 20100114
  Transmission Date: 20100710
  Serious: Yes (Hospitalization)
  Sender: FDA-Public Use
  Company Number: DE-ROCHE-559317

PATIENT
  Sex: Male
  Weight: 80 kg

DRUGS (6)
  1. BEVACIZUMAB [Suspect]
     Dosage: FREQUENCY REPORTED AS ALL 2 WEEKS, 5 MG/KG GIVEN ON D1 + D14 AS PER PROTOCOL
     Route: 042
     Dates: start: 20071205, end: 20080416
  2. OXALIPLATIN [Suspect]
     Dosage: FREQUENCY REPORTED AS ALL 2 WEEKS. 100 MG/M2 INFUSION.
     Route: 042
     Dates: start: 20071205, end: 20080416
  3. FOLINIC ACID [Suspect]
     Dosage: FREQUENCY REPORTED AS ALL 2 WEEKS. 400 MG/M2 INFUSION.  DRUG REPORTED AS: ^FOLINSANCE^
     Route: 042
     Dates: start: 20071205, end: 20080416
  4. 5 FU [Suspect]
     Dosage: 400 MG/M2 (792 MG) IV BOLUS FOLLOWED BY 2400 MG/M2 CIV. FREQUENCY REPORTED AS ALL 2 WEEKS.
     Route: 042
     Dates: start: 20071205, end: 20080416
  5. AMARYL [Concomitant]
  6. INSULIN NOVO LENTE [Concomitant]
     Dosage: TDD: 66 UNIT

REACTIONS (1)
  - CEREBRAL DISORDER [None]
